FAERS Safety Report 6687435-1 (Version None)
Quarter: 2010Q2

REPORT INFORMATION
  Report Type: 
  Country: None (occurrence: None)
  Receive Date: 20100419
  Receipt Date: 20100406
  Transmission Date: 20101027
  Serious: Yes (Other)
  Sender: FDA-Public Use
  Company Number: DE-GENENTECH-299602

PATIENT
  Sex: Male

DRUGS (1)
  1. LUCENTIS [Suspect]
     Indication: CHOROIDAL NEOVASCULARISATION
     Dosage: UNK
     Route: 031
     Dates: start: 20090101

REACTIONS (6)
  - DETACHMENT OF RETINAL PIGMENT EPITHELIUM [None]
  - DRUG INEFFECTIVE [None]
  - EYE HAEMORRHAGE [None]
  - RETINAL EXUDATES [None]
  - VISUAL ACUITY REDUCED [None]
  - VITRECTOMY [None]
